FAERS Safety Report 6671963-9 (Version None)
Quarter: 2010Q2

REPORT INFORMATION
  Report Type: 
  Country: None (occurrence: None)
  Receive Date: 20100407
  Receipt Date: 20100330
  Transmission Date: 20101027
  Serious: Yes (Hospitalization)
  Sender: FDA-Public Use
  Company Number: IT-AMGEN-KDC402353

PATIENT
  Sex: Female

DRUGS (3)
  1. PANITUMUMAB [Suspect]
     Indication: COLORECTAL CANCER
     Route: 042
     Dates: start: 20100325
  2. IRINOTECAN HYDROCHLORIDE [Concomitant]
     Dates: start: 20100325
  3. PERFALGAN [Concomitant]
     Dates: start: 20100323, end: 20100328

REACTIONS (4)
  - ARTHRALGIA [None]
  - DIARRHOEA [None]
  - FATIGUE [None]
  - MYALGIA [None]
